FAERS Safety Report 10215885 (Version 1)
Quarter: 2014Q2

REPORT INFORMATION
  Report Type: Spontaneous
  Country: ES (occurrence: None)
  Receive Date: 20140602
  Receipt Date: 20140602
  Transmission Date: 20141212
  Serious: Yes (Other)
  Sender: FDA-Public Use
  Company Number: 2014AP003148

PATIENT
  Age: 59 Year
  Sex: Male

DRUGS (1)
  1. CAPTOPRIL (CAPTOPRIL) TABLET [Suspect]
     Indication: MYOCARDIAL INFARCTION
     Dosage: 6.25 MG, UNK, UNKNOWN

REACTIONS (1)
  - Angioedema [None]
